FAERS Safety Report 10387045 (Version 2)
Quarter: 2014Q3

REPORT INFORMATION
  Report Type: Other
  Country: IT (occurrence: IT)
  Receive Date: 20140815
  Receipt Date: 20140815
  Transmission Date: 20150326
  Serious: Yes (Hospitalization)
  Sender: FDA-Public Use
  Company Number: IT-MYLAN-2014S1013663

PATIENT

DRUGS (1)
  1. METFORMIN HYDROCHLORIDE. [Suspect]
     Active Substance: METFORMIN HYDROCHLORIDE
     Indication: TYPE 2 DIABETES MELLITUS
     Dosage: 1 DF,TOTAL
     Route: 048
     Dates: start: 20090525, end: 20140525

REACTIONS (5)
  - Metabolic acidosis [Recovering/Resolving]
  - Vomiting [Recovering/Resolving]
  - Diabetic ketoacidotic hyperglycaemic coma [Recovering/Resolving]
  - Anuria [Recovering/Resolving]
  - Diarrhoea [Recovering/Resolving]

NARRATIVE: CASE EVENT DATE: 20140523
